FAERS Safety Report 11407918 (Version 1)
Quarter: 2015Q3

REPORT INFORMATION
  Report Type: Spontaneous
  Country: US (occurrence: US)
  Receive Date: 20150821
  Receipt Date: 20150821
  Transmission Date: 20151125
  Serious: No
  Sender: FDA-Public Use
  Company Number: US-NOVOPROD-437294

PATIENT
  Age: 68 Year
  Sex: Male

DRUGS (2)
  1. VICTOZA [Suspect]
     Active Substance: LIRAGLUTIDE
     Indication: TYPE 2 DIABETES MELLITUS
     Dosage: UNK
     Route: 058
  2. VICTOZA [Suspect]
     Active Substance: LIRAGLUTIDE
     Dosage: UNK
     Route: 058
     Dates: end: 20150213

REACTIONS (7)
  - Injection site pain [Not Recovered/Not Resolved]
  - Apathy [Not Recovered/Not Resolved]
  - Injection site mass [Recovered/Resolved]
  - Malaise [Not Recovered/Not Resolved]
  - Injection site rash [Recovered/Resolved]
  - Lethargy [Not Recovered/Not Resolved]
  - Injection site erythema [Unknown]

NARRATIVE: CASE EVENT DATE: 20150130
